FAERS Safety Report 12709904 (Version 3)
Quarter: 2016Q4

REPORT INFORMATION
  Report Type: Spontaneous
  Country: BR (occurrence: BR)
  Receive Date: 20160902
  Receipt Date: 20161117
  Transmission Date: 20170207
  Serious: Yes (Other)
  Sender: FDA-Public Use
  Company Number: BR-GLAXOSMITHKLINE-BR2016GSK126037

PATIENT
  Sex: Male
  Weight: 100 kg

DRUGS (4)
  1. MICARDIS AMLO [Concomitant]
     Active Substance: AMLODIPINE BESYLATE\TELMISARTAN
     Indication: HYPERTENSION
     Dosage: 1 UNK, QD
     Route: 048
  2. AVODART [Suspect]
     Active Substance: DUTASTERIDE
     Indication: BENIGN PROSTATIC HYPERPLASIA
     Dosage: 1 UNK, QD
     Route: 048
  3. DIOSMIN + HESPERIDIN [Concomitant]
     Dosage: 1 UNK, QD
     Route: 048
  4. AVODART [Suspect]
     Active Substance: DUTASTERIDE
     Dosage: UNK

REACTIONS (4)
  - Drug ineffective [Not Recovered/Not Resolved]
  - Urinary retention [Not Recovered/Not Resolved]
  - Product quality issue [Unknown]
  - Pollakiuria [Not Recovered/Not Resolved]
